FAERS Safety Report 6016371-9 (Version None)
Quarter: 2008Q4

REPORT INFORMATION
  Report Type: 
  Country: None (occurrence: None)
  Receive Date: 20081222
  Receipt Date: 20081215
  Transmission Date: 20090506
  Serious: Yes (Death)
  Sender: FDA-Public Use
  Company Number: US-PFIZER INC-2008153343

PATIENT
  Age: 48 Year
  Sex: Male

DRUGS (2)
  1. ISONIAZID [Suspect]
  2. RIFABUTIN [Suspect]

REACTIONS (1)
  - ADVERSE EVENT [None]
